FAERS Safety Report 13533750 (Version 2)
Quarter: 2017Q2

REPORT INFORMATION
  Report Type: Spontaneous
  Country: US (occurrence: US)
  Receive Date: 20170510
  Receipt Date: 20170518
  Transmission Date: 20170830
  Serious: Yes (Hospitalization, Other)
  Sender: FDA-Public Use
  Company Number: US-GLAXOSMITHKLINE-US2017GSK068790

PATIENT
  Age: 36 Year
  Sex: Male

DRUGS (1)
  1. LAMICTAL XR [Suspect]
     Active Substance: LAMOTRIGINE
     Indication: SEIZURE
     Dosage: DOSE/STRENGTH 200 MG

REACTIONS (3)
  - Multiple fractures [Unknown]
  - Hospitalisation [Unknown]
  - Road traffic accident [Unknown]

NARRATIVE: CASE EVENT DATE: 201702
